FAERS Safety Report 23468533 (Version 1)
Quarter: 2024Q1

REPORT INFORMATION
  Report Type: Spontaneous
  Country: GB (occurrence: GB)
  Receive Date: 20240202
  Receipt Date: 20240202
  Transmission Date: 20240409
  Serious: Yes (Disabling)
  Sender: FDA-Public Use
  Company Number: None

PATIENT
  Age: 44 Year
  Sex: Female
  Weight: 53 kg

DRUGS (17)
  1. PREGABALIN [Suspect]
     Active Substance: PREGABALIN
     Indication: Product used for unknown indication
     Dosage: 50 MILLIGRAM, BID CAPSULE, (TAKE ONE TWICE DAILY, INCREASING TO 3 TWICE AS)
     Route: 065
     Dates: start: 20230721, end: 20230804
  2. BACLOFEN [Concomitant]
     Active Substance: BACLOFEN
     Indication: Product used for unknown indication
     Dosage: UNK, PRN (HALF A TABLET THREE TIMES DAY AS NEEDED FOR MUS)
     Route: 065
     Dates: start: 20211004
  3. POLYETHYLENE GLYCOL 3350\POTASSIUM CHLORIDE\SODIUM BICARBONATE\SODIUM [Concomitant]
     Active Substance: POLYETHYLENE GLYCOL 3350\POTASSIUM CHLORIDE\SODIUM BICARBONATE\SODIUM CHLORIDE
     Indication: Product used for unknown indication
     Dosage: UNK, PRN (ONE SACHET ONCE OR TWICE DAILY AS NEEDED FOR CO)
     Route: 065
     Dates: start: 20221214
  4. DESOGESTREL [Concomitant]
     Active Substance: DESOGESTREL
     Indication: Product used for unknown indication
     Dosage: 1 DOSAGE FORM, QD
     Route: 065
     Dates: start: 20221214
  5. DIAZEPAM [Concomitant]
     Active Substance: DIAZEPAM
     Indication: Muscle spasms
     Dosage: 1 DOSAGE FORM, PRN
     Route: 065
     Dates: start: 20230426
  6. EPINEPHRINE BITARTRATE [Concomitant]
     Active Substance: EPINEPHRINE BITARTRATE
     Indication: Product used for unknown indication
     Dosage: UNK (USE AS DIRECTED FOR EMERGENCY TREATMENT OF ALLE)
     Route: 065
     Dates: start: 20221103
  7. EPINEPHRINE BITARTRATE [Concomitant]
     Active Substance: EPINEPHRINE BITARTRATE
     Indication: Product used for unknown indication
     Dosage: UNK (USE AS DIRECTED FOR EMERGENCY USE, WEIGHT GREATER THAN 30 KG)
     Route: 065
     Dates: start: 20211004
  8. OXYCODONE HYDROCHLORIDE [Concomitant]
     Active Substance: OXYCODONE HYDROCHLORIDE
     Indication: Product used for unknown indication
     Dosage: 1 DOSAGE FORM, BID (12 HOUR)
     Route: 065
     Dates: start: 20230426
  9. MIRTAZAPINE [Concomitant]
     Active Substance: MIRTAZAPINE
     Indication: Product used for unknown indication
     Dosage: 1 DOSAGE FORM, QD
     Route: 065
     Dates: start: 20220427
  10. NAPROXEN [Concomitant]
     Active Substance: NAPROXEN
     Indication: Product used for unknown indication
     Dosage: 2 DOSAGE FORM, QD (WITH FOOD WHEN REQU)
     Route: 065
     Dates: start: 20220520
  11. NORTRIPTYLINE [Concomitant]
     Active Substance: NORTRIPTYLINE
     Indication: Product used for unknown indication
     Dosage: 3 DOSAGE FORM, HS (AT NIGHT)
     Route: 065
     Dates: start: 20220803
  12. OMEPRAZOLE [Concomitant]
     Active Substance: OMEPRAZOLE
     Indication: Product used for unknown indication
     Dosage: 1 DOSAGE FORM, QD (TO PROTECT YOUR GUL)
     Route: 065
     Dates: start: 20211004
  13. OXYCODONE HYDROCHLORIDE [Concomitant]
     Active Substance: OXYCODONE HYDROCHLORIDE
     Indication: Product used for unknown indication
     Dosage: 5 MILLILITER, PRN (UP TO 4 TIMES DAILY AS NEEDED FOR PAI)
     Route: 065
     Dates: start: 20230721
  14. ACETAMINOPHEN [Concomitant]
     Active Substance: ACETAMINOPHEN
     Indication: Product used for unknown indication
     Dosage: UNK, QID (TAKE ONE OR TWO TABLETS UP TO FOUR TIMES A DAY)
     Route: 065
     Dates: start: 20230303
  15. PROCHLORPERAZINE [Concomitant]
     Active Substance: PROCHLORPERAZINE
     Indication: Product used for unknown indication
     Dosage: 3 DOSAGE FORM, QD (UP TO THREE TIMES A DAY TO HELP)
     Route: 065
     Dates: start: 20221214
  16. SENNA [Concomitant]
     Active Substance: SENNA LEAF\SENNOSIDES\SENNOSIDES A AND B
     Indication: Product used for unknown indication
     Dosage: 2 DOSAGE FORM, QD (AT NIGHT FOR MORPHINE INDUCED C)
     Route: 065
     Dates: start: 20220701
  17. OXYCODONE HYDROCHLORIDE [Concomitant]
     Active Substance: OXYCODONE HYDROCHLORIDE
     Indication: Product used for unknown indication
     Dosage: UNK, BID (TAKE ONE UP TO TWICE A DAY AS ADDITOINAL PAIN R)
     Route: 065
     Dates: start: 20230503, end: 20230721

REACTIONS (1)
  - Peripheral swelling [Recovered/Resolved]

NARRATIVE: CASE EVENT DATE: 20230804
